FAERS Safety Report 23511484 (Version 1)
Quarter: 2024Q1

REPORT INFORMATION
  Report Type: Spontaneous
  Country: US (occurrence: US)
  Receive Date: 20240212
  Receipt Date: 20240212
  Transmission Date: 20240410
  Serious: No
  Sender: FDA-Public Use
  Company Number: US-BAUSCHBL-2024BNL001337

PATIENT
  Age: 66 Year
  Sex: Female

DRUGS (6)
  1. ALAWAY [Suspect]
     Active Substance: KETOTIFEN FUMARATE
     Indication: Eye allergy
     Route: 065
  2. LUMIFY [Concomitant]
     Active Substance: BRIMONIDINE TARTRATE
     Indication: Product used for unknown indication
     Route: 065
  3. IVIZIA DRY EYE [Concomitant]
     Active Substance: POVIDONE
     Indication: Product used for unknown indication
     Route: 065
  4. CARBOXYMETHYLCELLULOSE [Concomitant]
     Active Substance: CARBOXYMETHYLCELLULOSE
     Indication: Product used for unknown indication
     Route: 065
  5. SICCAFORTE [Concomitant]
     Indication: Product used for unknown indication
     Route: 065
  6. RESTASIS [Concomitant]
     Active Substance: CYCLOSPORINE
     Indication: Product used for unknown indication
     Route: 065

REACTIONS (1)
  - Eye irritation [Unknown]
